FAERS Safety Report 9259197 (Version 8)
Quarter: 2014Q1

REPORT INFORMATION
  Report Type: Spontaneous
  Country: BR (occurrence: BR)
  Receive Date: 20130426
  Receipt Date: 20140225
  Transmission Date: 20141002
  Serious: Yes (Other)
  Sender: FDA-Public Use
  Company Number: BR-BIOMARINAP-BR-2013-100700

PATIENT
  Age: 34 Year
  Sex: Female
  Weight: 71 kg

DRUGS (2)
  1. ALDURAZYME [Suspect]
     Indication: MUCOPOLYSACCHARIDOSIS I
     Dosage: 1.2 MG/KG, QOW
     Route: 042
     Dates: start: 20090709
  2. CYCLOBENZAPRINE [Concomitant]
     Indication: PRODUCT USED FOR UNKNOWN INDICATION

REACTIONS (14)
  - Pachymeningitis [Not Recovered/Not Resolved]
  - Vertebral foraminal stenosis [Unknown]
  - Nerve compression [Not Recovered/Not Resolved]
  - Intervertebral disc degeneration [Unknown]
  - Back pain [Unknown]
  - Paraesthesia [Unknown]
  - Hypoaesthesia [Unknown]
  - Sensory loss [Unknown]
  - Spinal cord compression [Not Recovered/Not Resolved]
  - Benign neoplasm of thyroid gland [Not Recovered/Not Resolved]
  - Anti-thyroid antibody [Unknown]
  - Carpal tunnel syndrome [Recovering/Resolving]
  - Musculoskeletal stiffness [Unknown]
  - Diarrhoea [Recovered/Resolved]
